FAERS Safety Report 7268109-5 (Version None)
Quarter: 2011Q1

REPORT INFORMATION
  Report Type: 
  Country: None (occurrence: None)
  Receive Date: 20110201
  Receipt Date: 20110127
  Transmission Date: 20110831
  Serious: Yes (Other)
  Sender: FDA-Public Use
  Company Number: US-PFIZER INC-2011019903

PATIENT

DRUGS (2)
  1. METOPROLOL [Suspect]
  2. TIKOSYN [Suspect]
     Indication: ATRIAL FIBRILLATION

REACTIONS (1)
  - BRADYCARDIA [None]
